FAERS Safety Report 25757681 (Version 2)
Quarter: 2025Q4

REPORT INFORMATION
  Report Type: Spontaneous
  Country: US (occurrence: US)
  Receive Date: 20250903
  Receipt Date: 20251229
  Transmission Date: 20260118
  Serious: Yes (Hospitalization)
  Sender: NOVO NORDISK
  Company Number: US-NOVOPROD-1509471

PATIENT
  Age: 59 Year
  Sex: Female
  Weight: 76.19 kg

DRUGS (4)
  1. OZEMPIC [Suspect]
     Active Substance: SEMAGLUTIDE
     Indication: Type 2 diabetes mellitus
     Dosage: 0.25 MG, QW
     Dates: start: 20240314
  2. OZEMPIC [Suspect]
     Active Substance: SEMAGLUTIDE
     Indication: Cardiovascular event prophylaxis
  3. OZEMPIC [Suspect]
     Active Substance: SEMAGLUTIDE
     Indication: Obesity
  4. METFORMIN [Concomitant]
     Active Substance: METFORMIN HYDROCHLORIDE
     Indication: Type 2 diabetes mellitus
     Dosage: UNK
     Dates: start: 20140101, end: 20250101

REACTIONS (10)
  - Hospitalisation [Unknown]
  - Post-traumatic stress disorder [Unknown]
  - Depression [Unknown]
  - Anxiety [Unknown]
  - Pain [Unknown]
  - Fear [Unknown]
  - Sleep disorder [Unknown]
  - Decreased appetite [Not Recovered/Not Resolved]
  - Nausea [Not Recovered/Not Resolved]
  - Vomiting [Not Recovered/Not Resolved]

NARRATIVE: CASE EVENT DATE: 20241225
